FAERS Safety Report 8808785 (Version 2)
Quarter: 2012Q4

REPORT INFORMATION
  Report Type: 
  Country: PE (occurrence: PE)
  Receive Date: 20120926
  Receipt Date: 20121003
  Transmission Date: 20130627
  Serious: Yes (Death, Hospitalization)
  Sender: FDA-Public Use
  Company Number: PE-PFIZER INC-2012233826

PATIENT
  Age: 65 Year
  Sex: Female

DRUGS (2)
  1. XALATAN [Suspect]
     Indication: GLAUCOMA
     Dosage: 1.5 ug, 1x/day
     Route: 047
     Dates: start: 2010, end: 20120923
  2. ENALAPRIL [Concomitant]
     Route: 048

REACTIONS (2)
  - Bile duct cancer [Fatal]
  - Ulcer [Not Recovered/Not Resolved]
